FAERS Safety Report 11310616 (Version 2)
Quarter: 2015Q4

REPORT INFORMATION
  Report Type: Spontaneous
  Country: US (occurrence: US)
  Receive Date: 20150724
  Receipt Date: 20151009
  Transmission Date: 20160304
  Serious: Yes (Death, Hospitalization)
  Sender: FDA-Public Use
  Company Number: US-INCYTE CORPORATION-2015IN003586

PATIENT
  Sex: Female

DRUGS (1)
  1. JAKAFI [Suspect]
     Active Substance: RUXOLITINIB
     Indication: MYELOPROLIFERATIVE DISORDER
     Dosage: 5 MG, BID
     Route: 048
     Dates: start: 20150410

REACTIONS (3)
  - Acute myeloid leukaemia [Not Recovered/Not Resolved]
  - Gastrointestinal haemorrhage [Fatal]
  - Pneumonia [Fatal]
